FAERS Safety Report 23585864 (Version 2)
Quarter: 2024Q1

REPORT INFORMATION
  Report Type: Report from Study
  Country: US (occurrence: US)
  Receive Date: 20240301
  Receipt Date: 20240308
  Transmission Date: 20240410
  Serious: Yes (Hospitalization)
  Sender: FDA-Public Use
  Company Number: US-TEVA-VS-3136755

PATIENT
  Age: 56 Year
  Sex: Female

DRUGS (1)
  1. AUSTEDO XR [Suspect]
     Active Substance: DEUTETRABENAZINE
     Indication: Tardive dyskinesia
     Route: 065
     Dates: start: 20230215

REACTIONS (7)
  - Foot fracture [Unknown]
  - Back pain [Unknown]
  - Ankle fracture [Unknown]
  - Neck pain [Unknown]
  - Peripheral swelling [Unknown]
  - Contusion [Unknown]
  - Muscle twitching [Unknown]

NARRATIVE: CASE EVENT DATE: 20230101
